FAERS Safety Report 6694470-6 (Version None)
Quarter: 2010Q2

REPORT INFORMATION
  Report Type: 
  Country: None (occurrence: None)
  Receive Date: 20100423
  Receipt Date: 20100413
  Transmission Date: 20101027
  Serious: Yes (Hospitalization, Disabling)
  Sender: FDA-Public Use
  Company Number: US-JNJFOC-20100403971

PATIENT
  Sex: Male
  Weight: 53.7 kg

DRUGS (4)
  1. REMICADE [Suspect]
     Indication: INFLAMMATORY BOWEL DISEASE
     Route: 042
  2. METRONIDAZOLE [Concomitant]
  3. PREDNISONE [Concomitant]
  4. HUMIRA [Concomitant]

REACTIONS (1)
  - COLONIC STENOSIS [None]
